FAERS Safety Report 14426522 (Version 2)
Quarter: 2021Q2

REPORT INFORMATION
  Report Type: Spontaneous
  Country: US (occurrence: US)
  Receive Date: 20180123
  Receipt Date: 20210602
  Transmission Date: 20210716
  Serious: No
  Sender: FDA-Public Use
  Company Number: US-ROCHE-2033397

PATIENT
  Age: 53 Year
  Sex: Female
  Weight: 113.5 kg

DRUGS (4)
  1. OCREVUS [Suspect]
     Active Substance: OCRELIZUMAB
     Dosage: 600 MG IV INFUSION EVERY 6 MONTHS ;ONGOING: NO
     Route: 042
     Dates: start: 20171109, end: 20171109
  2. METHYL PRED [Suspect]
     Active Substance: METHYLPREDNISOLONE
     Indication: PRURITUS
     Dosage: METHYLPREDNISOLONE 4 MG DOSE (PAK 21 S) ;ONGOING: YES
     Route: 048
     Dates: start: 20171121
  3. BENADRYL [Suspect]
     Active Substance: DIPHENHYDRAMINE HYDROCHLORIDE
     Indication: PRURITUS
     Dosage: 50 MG TWICE A DAY ;ONGOING: NO
     Route: 048
     Dates: start: 20171113, end: 20171118
  4. OCREVUS [Suspect]
     Active Substance: OCRELIZUMAB
     Indication: MULTIPLE SCLEROSIS
     Route: 042
     Dates: start: 20171026, end: 20171026

REACTIONS (6)
  - Dry skin [Not Recovered/Not Resolved]
  - Ear pruritus [Not Recovered/Not Resolved]
  - Burning sensation [Not Recovered/Not Resolved]
  - Pain [Not Recovered/Not Resolved]
  - Skin fissures [Not Recovered/Not Resolved]
  - Pruritus [Not Recovered/Not Resolved]

NARRATIVE: CASE EVENT DATE: 20171111
